FAERS Safety Report 25765540 (Version 2)
Quarter: 2025Q4

REPORT INFORMATION
  Report Type: Spontaneous
  Country: JP (occurrence: JP)
  Receive Date: 20250905
  Receipt Date: 20251024
  Transmission Date: 20260118
  Serious: Yes (Other)
  Sender: MYLAN
  Company Number: JP-VIATRISJAPAN-2025M1073684AA

PATIENT
  Age: 76 Year
  Sex: Male

DRUGS (4)
  1. XALATAN [Suspect]
     Active Substance: LATANOPROST
     Indication: Ocular hypertension
     Dosage: UNK
  2. CARTEOLOL [Suspect]
     Active Substance: CARTEOLOL
     Indication: Ocular hypertension
     Dosage: UNK
  3. BRINZOLAMIDE [Suspect]
     Active Substance: BRINZOLAMIDE
     Indication: Ocular hypertension
     Dosage: UNK
  4. RIPASUDIL [Suspect]
     Active Substance: RIPASUDIL
     Indication: Ocular hypertension
     Dosage: UNK

REACTIONS (1)
  - Anterior chamber inflammation [Recovered/Resolved]
